FAERS Safety Report 11441709 (Version 1)
Quarter: 2015Q3

REPORT INFORMATION
  Report Type: Spontaneous
  Country: FR (occurrence: FR)
  Receive Date: 20150901
  Receipt Date: 20150901
  Transmission Date: 20151125
  Serious: Yes (Other)
  Sender: FDA-Public Use
  Company Number: FR-PFIZER INC-2015287727

PATIENT
  Age: 61 Year
  Sex: Female

DRUGS (9)
  1. BISOPROLOL [Concomitant]
     Active Substance: BISOPROLOL
  2. COAPROVEL [Concomitant]
     Active Substance: HYDROCHLOROTHIAZIDE\IRBESARTAN
  3. LAROXYL [Concomitant]
     Active Substance: AMITRIPTYLINE
  4. SEROPLEX [Concomitant]
     Active Substance: ESCITALOPRAM OXALATE
  5. TAHOR [Concomitant]
     Active Substance: ATORVASTATIN CALCIUM
  6. LEVOTHYROX [Concomitant]
     Active Substance: LEVOTHYROXINE
  7. CELEBREX [Suspect]
     Active Substance: CELECOXIB
     Dosage: 1 DF, ONE SINGLE
     Route: 048
     Dates: start: 20141120, end: 20141120
  8. XANAX [Concomitant]
     Active Substance: ALPRAZOLAM
  9. KARDEGIC [Suspect]
     Active Substance: ASPIRIN LYSINE
     Dosage: 1 DF, A SINGLE
     Route: 048
     Dates: start: 20141120, end: 20141120

REACTIONS (1)
  - Type I hypersensitivity [Recovered/Resolved]

NARRATIVE: CASE EVENT DATE: 20141120
